FAERS Safety Report 10089004 (Version 1)
Quarter: 2014Q2

REPORT INFORMATION
  Report Type: Spontaneous
  Country: US (occurrence: US)
  Receive Date: 20140421
  Receipt Date: 20140421
  Transmission Date: 20141212
  Serious: Yes (Hospitalization)
  Sender: FDA-Public Use
  Company Number: US-AMGEN-USASP2014027500

PATIENT
  Age: 74 Year
  Sex: Male

DRUGS (8)
  1. XGEVA [Suspect]
     Indication: PROPHYLAXIS
     Dosage: UNK UNK, QMO
     Route: 065
     Dates: start: 2013
  2. ZYTIGA [Suspect]
     Indication: PRODUCT USED FOR UNKNOWN INDICATION
     Dosage: 250 MG, QD
     Route: 048
  3. PREDNISONE [Suspect]
     Indication: PRODUCT USED FOR UNKNOWN INDICATION
     Dosage: 5 MG, BID
     Route: 065
  4. LANTUS [Concomitant]
  5. ASPIRIN                            /00002701/ [Concomitant]
     Dosage: 81 MG, UNK
  6. LEVOTHYROXIN [Concomitant]
  7. SIMVASTATIN [Concomitant]
  8. PROVENGE [Concomitant]

REACTIONS (2)
  - Hypocalcaemia [Recovered/Resolved]
  - Renal failure acute [Recovered/Resolved]
